FAERS Safety Report 5965592-X (Version None)
Quarter: 2008Q4

REPORT INFORMATION
  Report Type: 
  Country: None (occurrence: None)
  Receive Date: 20081125
  Receipt Date: 20081117
  Transmission Date: 20090506
  Serious: Yes (Other)
  Sender: FDA-Public Use
  Company Number: B0547551A

PATIENT
  Age: 55 Year
  Sex: Female

DRUGS (2)
  1. NICABATE CQ 4MG LOZENGE [Suspect]
     Indication: DRUG WITHDRAWAL MAINTENANCE THERAPY
     Dosage: 8LOZ PER DAY
     Route: 002
     Dates: start: 20050101
  2. OROXINE [Concomitant]
     Indication: DRUG USE FOR UNKNOWN INDICATION
     Route: 065

REACTIONS (2)
  - HYPOTHYROIDISM [None]
  - INTENTIONAL DRUG MISUSE [None]
